FAERS Safety Report 7978745-6 (Version None)
Quarter: 2011Q4

REPORT INFORMATION
  Report Type: 
  Country: None (occurrence: None)
  Receive Date: 20111214
  Receipt Date: 20111209
  Transmission Date: 20120403
  Serious: Yes (Hospitalization)
  Sender: FDA-Public Use
  Company Number: JP-PFIZER INC-2011301466

PATIENT
  Age: 92 Year
  Sex: Female

DRUGS (4)
  1. LIVALO [Concomitant]
     Indication: HYPERCHOLESTEROLAEMIA
     Dosage: UNK
     Route: 048
  2. NORVASC [Concomitant]
     Indication: HYPERTENSION
     Dosage: 5 MG, UNK
     Route: 048
  3. LOXONIN [Concomitant]
     Route: 048
  4. EPLERENONE [Suspect]
     Indication: HYPERTENSION
     Dosage: 50 MG/DAY
     Route: 048
     Dates: end: 20111122

REACTIONS (2)
  - HYPERKALAEMIA [None]
  - BRADYCARDIA [None]
